FAERS Safety Report 6658683-1 (Version None)
Quarter: 2010Q1

REPORT INFORMATION
  Report Type: 
  Country: None (occurrence: None)
  Receive Date: 20100330
  Receipt Date: 20100318
  Transmission Date: 20100710
  Serious: Yes (Hospitalization, Other)
  Sender: FDA-Public Use
  Company Number: PHHY2010CA15230

PATIENT
  Sex: Female

DRUGS (8)
  1. EXJADE [Suspect]
     Indication: BREAST CANCER METASTATIC
     Dosage: 1250 MG DAILY
     Route: 048
     Dates: start: 20100113, end: 20100301
  2. EXJADE [Suspect]
     Indication: BONE MARROW DISORDER
  3. METOCLOPRAMIDE [Concomitant]
     Dosage: 10 MG, QD
     Route: 048
  4. PIOGLITAZONE [Concomitant]
     Dosage: 30 MG, QD
     Route: 048
  5. BISOPROLOL [Concomitant]
     Dosage: 5 MG, QD
     Route: 048
  6. LORAZEPAM [Concomitant]
     Dosage: 1 MG, QD
     Route: 048
  7. MEGESTROL [Concomitant]
  8. DILANTIN                                /AUS/ [Concomitant]
     Dosage: TID
     Route: 048

REACTIONS (2)
  - BRAIN NEOPLASM [None]
  - CONVULSION [None]
